FAERS Safety Report 5925061-X (Version None)
Quarter: 2008Q4

REPORT INFORMATION
  Report Type: 
  Country: None (occurrence: None)
  Receive Date: 20081021
  Receipt Date: 20080418
  Transmission Date: 20090506
  Serious: Yes (Hospitalization)
  Sender: FDA-Public Use
  Company Number: FR-JNJFOC-20080407168

PATIENT
  Sex: Female

DRUGS (12)
  1. IXPRIM [Suspect]
     Indication: PAIN
     Route: 048
  2. ACETAMINOPHEN W/ CODEINE [Suspect]
     Indication: PAIN
     Route: 048
  3. HOMEOPATHIC DRUG [Suspect]
     Indication: NASOPHARYNGITIS
     Route: 045
  4. SURGICEL ABSORBABLE HEMOSTATIC CONE [Suspect]
     Indication: SURGERY
     Route: 003
  5. AUGMENTIN '125' [Suspect]
     Indication: DRUG USE FOR UNKNOWN INDICATION
     Route: 048
  6. TAVANIC [Suspect]
     Indication: DRUG USE FOR UNKNOWN INDICATION
     Route: 065
  7. OSCILLOCOCCINUM [Concomitant]
     Route: 065
  8. HOMEOPATHIC DRUG [Concomitant]
     Route: 065
  9. SOLUTRICINE [Concomitant]
     Route: 065
  10. HEXTRIL [Concomitant]
     Route: 065
  11. BETADINE [Concomitant]
     Route: 065
  12. XYLOCAIN [Concomitant]
     Route: 065

REACTIONS (3)
  - ANGIOEDEMA [None]
  - RASH PRURITIC [None]
  - SINUSITIS [None]
